FAERS Safety Report 9445031 (Version 2)
Quarter: 2013Q3

REPORT INFORMATION
  Report Type: Spontaneous
  Country: FR (occurrence: None)
  Receive Date: 20130729
  Receipt Date: 20130808
  Transmission Date: 20140515
  Serious: Yes (Other)
  Sender: FDA-Public Use
  Company Number: 2013037048

PATIENT
  Age: 3 Year
  Sex: Male

DRUGS (1)
  1. TEGELINE [Suspect]
     Indication: KAWASAKI^S DISEASE
     Dosage: 2000 MG/KG TOTAL, FIRST DOSE; IN TWO INJECTIONS, 2000 MG/KG TOTAL, 2ND DOSE; BOLUS DOSE 1 INJECTION ( 1 DAY 0 , NI)
     Route: 042

REACTIONS (1)
  - Drug ineffective [None]
